FAERS Safety Report 6144800-9 (Version None)
Quarter: 2009Q2

REPORT INFORMATION
  Report Type: 
  Country: None (occurrence: None)
  Receive Date: 20090406
  Receipt Date: 20090331
  Transmission Date: 20091009
  Serious: Yes (Hospitalization)
  Sender: FDA-Public Use
  Company Number: DE-ABBOTT-09P-062-0565718-00

PATIENT
  Sex: Female

DRUGS (4)
  1. HUMIRA [Suspect]
     Indication: RHEUMATOID ARTHRITIS
     Route: 058
     Dates: start: 20080620
  2. TRAMADOL HCL [Concomitant]
     Indication: PAIN
  3. METAMIZOLE [Concomitant]
     Indication: RHEUMATOID ARTHRITIS
  4. CORTISONE [Concomitant]
     Indication: PAIN

REACTIONS (1)
  - RHEUMATOID ARTHRITIS [None]
